FAERS Safety Report 6689146-5 (Version None)
Quarter: 2010Q2

REPORT INFORMATION
  Report Type: 
  Country: None (occurrence: None)
  Receive Date: 20100420
  Receipt Date: 20100413
  Transmission Date: 20101027
  Serious: Yes (Hospitalization)
  Sender: FDA-Public Use
  Company Number: US-GILEAD-2010-0028478

PATIENT
  Sex: Female
  Weight: 81.8 kg

DRUGS (11)
  1. LETAIRIS [Suspect]
     Indication: PULMONARY ARTERIAL HYPERTENSION
     Route: 048
     Dates: start: 20100309
  2. REVATIO [Concomitant]
  3. ATENOLOL [Concomitant]
  4. LOVAZA [Concomitant]
  5. NEXIUM [Concomitant]
  6. VITAMIN E [Concomitant]
  7. VITAMIN C [Concomitant]
  8. ASPIRIN [Concomitant]
  9. XANAX [Concomitant]
  10. DARVOCET-N 100 [Concomitant]
  11. PEPCID [Concomitant]

REACTIONS (1)
  - CHEST PAIN [None]
